FAERS Safety Report 20351671 (Version 4)
Quarter: 2022Q1

REPORT INFORMATION
  Report Type: Report from Study
  Country: HU (occurrence: HU)
  Receive Date: 20220119
  Receipt Date: 20220131
  Transmission Date: 20220424
  Serious: Yes (Life-Threatening, Other)
  Sender: FDA-Public Use
  Company Number: HU-NOVARTISPH-NVSC2022HU010701

PATIENT
  Sex: Female
  Weight: 71.5 kg

DRUGS (11)
  1. METFORMIN HYDROCHLORIDE\VILDAGLIPTIN [Suspect]
     Active Substance: METFORMIN HYDROCHLORIDE\VILDAGLIPTIN
     Indication: Type 2 diabetes mellitus
     Dosage: UNK, BID (IN THE MORNING AND EVENING)
     Route: 065
     Dates: start: 202111
  2. METFORMIN HYDROCHLORIDE\VILDAGLIPTIN [Suspect]
     Active Substance: METFORMIN HYDROCHLORIDE\VILDAGLIPTIN
     Dosage: UNK UNK, BID
     Route: 048
     Dates: start: 20210617
  3. .ALPHA.-LIPOIC ACID [Concomitant]
     Active Substance: .ALPHA.-LIPOIC ACID
     Indication: Product used for unknown indication
     Dosage: UNK, QD (IN THE MORNING)
     Route: 065
  4. .ALPHA.-LIPOIC ACID [Concomitant]
     Active Substance: .ALPHA.-LIPOIC ACID
     Dosage: 600 MG
     Route: 065
  5. ASPIRIN [Concomitant]
     Active Substance: ASPIRIN
     Indication: Product used for unknown indication
     Dosage: 100 MG IN THE MORNING
     Route: 065
  6. FUROSEMIDE [Concomitant]
     Active Substance: FUROSEMIDE
     Indication: Product used for unknown indication
     Dosage: 1 DOSAGE FORM IN THE MORNING
     Route: 065
  7. POTASSIUM CHLORIDE [Concomitant]
     Active Substance: POTASSIUM CHLORIDE
     Indication: Product used for unknown indication
     Dosage: 1 DOSAGE FORM, BID
     Route: 065
  8. NOACID [Concomitant]
     Indication: Product used for unknown indication
     Dosage: 40 MG IN THE EVENING
     Route: 065
  9. ATORVASTATIN [Concomitant]
     Active Substance: ATORVASTATIN
     Indication: Product used for unknown indication
     Dosage: 20 MG IN THE EVENING
     Route: 065
  10. MILURIT ^THIEMANN^ [Concomitant]
     Indication: Product used for unknown indication
     Dosage: 100 MG IN THE MORNING
     Route: 065
  11. FERRETAB [Concomitant]
     Indication: Product used for unknown indication
     Dosage: 1 DOSAGE FORM, TID
     Route: 065

REACTIONS (12)
  - Fatigue [Recovered/Resolved]
  - Somnolence [Unknown]
  - Insomnia [Not Recovered/Not Resolved]
  - Coma [Not Recovered/Not Resolved]
  - Blood glucose increased [Not Recovered/Not Resolved]
  - Loss of consciousness [Unknown]
  - Mitral valve stenosis [Unknown]
  - Sinus node dysfunction [Unknown]
  - Heart rate decreased [Unknown]
  - Left ventricular hypertrophy [Unknown]
  - Glycosylated haemoglobin abnormal [Unknown]
  - Asthenia [Not Recovered/Not Resolved]
